FAERS Safety Report 7782124-4 (Version None)
Quarter: 2011Q3

REPORT INFORMATION
  Report Type: 
  Country: None (occurrence: None)
  Receive Date: 20110927
  Receipt Date: 20110922
  Transmission Date: 20111222
  Serious: Yes (Hospitalization)
  Sender: FDA-Public Use
  Company Number: US-ELI_LILLY_AND_COMPANY-US201109006399

PATIENT
  Sex: Male

DRUGS (10)
  1. FOLIC ACID [Concomitant]
  2. FENTANYL [Concomitant]
  3. COMPAZINE [Concomitant]
  4. PEMETREXED [Suspect]
     Indication: LARYNGEAL CANCER
     Dosage: 500 MG/M2, DAY 1, EVERY 21 DAYS
     Route: 042
     Dates: start: 20110809
  5. RADIATION [Suspect]
     Indication: LARYNGEAL CANCER
     Dosage: 70 GY DAILY M-F
  6. DOXYCLINE                          /00055701/ [Concomitant]
  7. CETUXIMAB [Suspect]
     Indication: LARYNGEAL CANCER
     Dosage: 400 MG/M2, LOADING DOSE
     Route: 042
     Dates: start: 20110801
  8. NEURONTIN [Concomitant]
  9. BEVACIZUMAB [Suspect]
     Indication: LARYNGEAL CANCER
     Dosage: 15 MG/M2, DAY 1, EVERY 21 DAYS
     Route: 042
     Dates: start: 20110809
  10. CETUXIMAB [Suspect]
     Dosage: 250 MG/M2, WEEKLY DURING RT
     Route: 042
     Dates: start: 20110801

REACTIONS (4)
  - FATIGUE [None]
  - DRY SKIN [None]
  - PAIN [None]
  - DEHYDRATION [None]
